FAERS Safety Report 5267299-3 (Version None)
Quarter: 2007Q1

REPORT INFORMATION
  Report Type: 
  Country: None (occurrence: None)
  Receive Date: 20070316
  Receipt Date: 20070313
  Transmission Date: 20070707
  Serious: Yes (Hospitalization)
  Sender: FDA-Public Use
  Company Number: JP-GLAXOSMITHKLINE-B0460277A

PATIENT
  Age: 92 Year
  Sex: Female

DRUGS (8)
  1. VALTREX [Suspect]
     Indication: HERPES ZOSTER
     Dosage: 500MG THREE TIMES PER DAY
     Route: 048
     Dates: start: 20070223, end: 20070225
  2. UNKNOWN DRUG [Concomitant]
     Indication: HERPES ZOSTER
     Dosage: 180MG PER DAY
     Route: 048
     Dates: start: 20070223, end: 20070225
  3. CYANOCOBALAMIN [Concomitant]
     Indication: HERPES ZOSTER
     Dosage: 750MCG PER DAY
     Route: 048
     Dates: start: 20070223, end: 20070225
  4. CASAL [Concomitant]
     Indication: HERPES ZOSTER
     Dosage: 10G PER DAY
     Route: 061
     Dates: start: 20070223, end: 20070225
  5. UNKNOWN DRUG [Concomitant]
     Indication: THROMBOSIS
     Dosage: 100MG PER DAY
     Route: 048
     Dates: start: 20040101
  6. UNKNOWN DRUG [Concomitant]
     Indication: DEMENTIA
     Dosage: 300MG PER DAY
     Route: 048
     Dates: start: 20050101
  7. GANATON [Concomitant]
     Indication: GASTRITIS
     Dosage: 150MG PER DAY
     Route: 048
     Dates: start: 20060101
  8. ZESTROMIN [Concomitant]
     Indication: INSOMNIA
     Dosage: .25MG PER DAY
     Route: 048
     Dates: start: 20050101

REACTIONS (4)
  - DEPRESSED LEVEL OF CONSCIOUSNESS [None]
  - DYSARTHRIA [None]
  - HYPOTHERMIA [None]
  - RESTLESSNESS [None]
